FAERS Safety Report 11706291 (Version 2)
Quarter: 2015Q4

REPORT INFORMATION
  Report Type: Spontaneous
  Country: JP (occurrence: JP)
  Receive Date: 20151106
  Receipt Date: 20151209
  Transmission Date: 20160304
  Serious: Yes (Hospitalization)
  Sender: FDA-Public Use
  Company Number: PHJP2015JP019260

PATIENT
  Age: 79 Year
  Sex: Male

DRUGS (5)
  1. L DOPA [Concomitant]
     Active Substance: LEVODOPA
     Indication: PARKINSON^S DISEASE
     Dosage: AFTER EACH MEAL
     Route: 065
  2. SELEGILINE HCL [Suspect]
     Active Substance: SELEGILINE HYDROCHLORIDE
     Dosage: (2 TABLETS IN THE MORNING AND 1 TABLET IN THE EVENING)
     Route: 048
  3. COMTAN [Suspect]
     Active Substance: ENTACAPONE
     Indication: PARKINSON^S DISEASE
     Dosage: 600 MG, UNK
     Route: 048
  4. SELEGILINE HCL [Suspect]
     Active Substance: SELEGILINE HYDROCHLORIDE
     Indication: PARKINSON^S DISEASE
     Dosage: 7.5 MG, UNK
     Route: 048
  5. L DOPA [Concomitant]
     Active Substance: LEVODOPA
     Dosage: AT THE TIME OF AWAKENING, AFTER MORNING MEAL, AFTER LUNCH, AT 1500 HOURS, AFTER EVENING MEAL, AND AT
     Route: 065

REACTIONS (4)
  - Parkinson^s disease [Recovering/Resolving]
  - Dementia [Recovering/Resolving]
  - Apathy [Recovering/Resolving]
  - Drug effect decreased [Recovering/Resolving]
